FAERS Safety Report 23314085 (Version 2)
Quarter: 2024Q1

REPORT INFORMATION
  Report Type: Spontaneous
  Country: US (occurrence: US)
  Receive Date: 20231219
  Receipt Date: 20240205
  Transmission Date: 20240409
  Serious: No
  Sender: FDA-Public Use
  Company Number: US-PFIZER INC-202300433585

PATIENT
  Age: 8 Year
  Sex: Female

DRUGS (1)
  1. GENOTROPIN [Suspect]
     Active Substance: SOMATROPIN
     Dosage: 1.3MG 6 DAYS/WEEK

REACTIONS (2)
  - Poor quality device used [Unknown]
  - Liquid product physical issue [Unknown]
